FAERS Safety Report 8447087-7 (Version None)
Quarter: 2012Q2

REPORT INFORMATION
  Report Type: 
  Country: None (occurrence: None)
  Receive Date: 20120612
  Receipt Date: 20120530
  Transmission Date: 20120825
  Serious: Yes (Life-Threatening, Hospitalization)
  Sender: FDA-Public Use
  Company Number: GER/GER/12/0024535

PATIENT
  Age: 64 Year
  Sex: Male
  Weight: 100 kg

DRUGS (8)
  1. CLOPIDEGREL [Suspect]
     Indication: PRODUCT USED FOR UNKNOWN INDICATION
     Dosage: ORAL
     Route: 048
     Dates: start: 20111101
  2. ENALAPRIL MALEATE [Concomitant]
  3. METFFORMIN HYDROCHLORIDE [Concomitant]
  4. BISOPROLOL FUMARATE [Concomitant]
  5. ASPIRIN [Suspect]
     Indication: CORONARY ARTERY DISEASE
     Dosage: 100 MG, 1 IN 1 D, ORAL
     Route: 048
     Dates: start: 20050801
  6. SIMVASTATIN [Concomitant]
  7. EFIENT 10 MG COATED TABLETS (PRASUGREL HYDROCHLORIDE) [Suspect]
     Indication: STENT PLACEMENT
     Dosage: 10 MG, 1 IN 1 D, ORAL
     Route: 048
     Dates: start: 20111021, end: 20111101
  8. INSPRA [Concomitant]

REACTIONS (6)
  - PAIN [None]
  - HAEMOGLOBIN DECREASED [None]
  - DRUG INTERACTION [None]
  - PERIPHERAL VASCULAR DISORDER [None]
  - HAEMORRHAGE [None]
  - HYPOTENSION [None]
